FAERS Safety Report 8821119 (Version 2)
Quarter: 2012Q4

REPORT INFORMATION
  Report Type: 
  Country: US (occurrence: US)
  Receive Date: 20121002
  Receipt Date: 20121109
  Transmission Date: 20130627
  Serious: No
  Sender: FDA-Public Use
  Company Number: US-009507513-1209USA006107

PATIENT
  Age: 38 None
  Sex: Female
  Weight: 102.49 kg

DRUGS (1)
  1. IMPLANON [Suspect]
     Indication: CONTRACEPTION
     Dosage: 1 rod
     Route: 059
     Dates: start: 20120726, end: 20120917

REACTIONS (4)
  - Cellulitis [Not Recovered/Not Resolved]
  - Implant site erythema [Not Recovered/Not Resolved]
  - Implant site irritation [Not Recovered/Not Resolved]
  - Medical device complication [Unknown]
